FAERS Safety Report 4791681-1 (Version None)
Quarter: 2005Q4

REPORT INFORMATION
  Report Type: 
  Country: None (occurrence: None)
  Receive Date: 20051007
  Receipt Date: 20050930
  Transmission Date: 20060501
  Serious: Yes (Hospitalization)
  Sender: FDA-Public Use
  Company Number: JPKYO-S-2005005

PATIENT
  Age: 61 Year
  Sex: Male

DRUGS (11)
  1. NAVELBINE [Suspect]
     Indication: LUNG CARCINOMA CELL TYPE UNSPECIFIED STAGE IV
     Dosage: 38MG PER DAY
     Route: 042
     Dates: start: 20050524, end: 20050524
  2. AQUPLA [Suspect]
     Indication: LUNG CARCINOMA CELL TYPE UNSPECIFIED STAGE IV
     Dosage: 120MG PER DAY
     Route: 042
     Dates: start: 20050524, end: 20050524
  3. PLETAL [Concomitant]
  4. ALOSENN [Concomitant]
  5. HARNAL [Concomitant]
  6. UBRETID [Concomitant]
  7. CYANOCOBALAMIN [Concomitant]
  8. TAKEPRON [Concomitant]
  9. HUMACART [Concomitant]
  10. HUMACART [Concomitant]
  11. MYONAL [Concomitant]

REACTIONS (3)
  - BLOOD CREATININE INCREASED [None]
  - BLOOD UREA INCREASED [None]
  - RENAL IMPAIRMENT [None]
